FAERS Safety Report 15296366 (Version 2)
Quarter: 2018Q3

REPORT INFORMATION
  Report Type: Spontaneous
  Country: US (occurrence: US)
  Receive Date: 20180820
  Receipt Date: 20180911
  Transmission Date: 20181010
  Serious: Yes (Hospitalization, Other)
  Sender: FDA-Public Use
  Company Number: US-PFIZER INC-2018332343

PATIENT
  Age: 56 Year
  Sex: Female

DRUGS (15)
  1. NEXIUM [Suspect]
     Active Substance: ESOMEPRAZOLE MAGNESIUM
     Indication: GASTROOESOPHAGEAL REFLUX DISEASE
     Dosage: 40 MG, UNK
     Dates: start: 2014, end: 2015
  2. FAMOTIDINE. [Concomitant]
     Active Substance: FAMOTIDINE
     Dosage: UNK
  3. PROTONIX [Suspect]
     Active Substance: PANTOPRAZOLE SODIUM
     Indication: GASTROOESOPHAGEAL REFLUX DISEASE
     Dosage: 40 MG, UNK
     Dates: start: 2016
  4. PANTOPRAZOLE [Suspect]
     Active Substance: PANTOPRAZOLE
     Indication: GASTROOESOPHAGEAL REFLUX DISEASE
     Dosage: 40 MG, UNK
     Dates: start: 2017
  5. CIMETIDINE HYDROCHLORIDE. [Concomitant]
     Active Substance: CIMETIDINE HYDROCHLORIDE
     Dosage: UNK
  6. PEPCID [Concomitant]
     Active Substance: FAMOTIDINE
     Dosage: UNK
  7. ZANTAC [Concomitant]
     Active Substance: RANITIDINE HYDROCHLORIDE
     Dosage: UNK
  8. BENADRYL [Concomitant]
     Active Substance: DIPHENHYDRAMINE HYDROCHLORIDE
     Indication: HYPERSENSITIVITY
     Dosage: UNK
     Dates: start: 2017
  9. CIMETIDINE [Concomitant]
     Active Substance: CIMETIDINE
     Dosage: UNK
  10. RANITIDINE. [Concomitant]
     Active Substance: RANITIDINE
     Dosage: UNK
  11. OMEPRAZOLE. [Suspect]
     Active Substance: OMEPRAZOLE
     Indication: GASTROOESOPHAGEAL REFLUX DISEASE
     Dosage: 10 MG, UNK
     Dates: start: 2011, end: 2014
  12. FAMOTIDINE, CALCIUM CARBONATE AND MAGNESIUM HYDROXIDE (OTC) [Concomitant]
     Dosage: UNK
  13. MAGNESIUM HYDROXIDE. [Concomitant]
     Active Substance: MAGNESIUM HYDROXIDE
     Dosage: UNK
  14. PEPCID AC (OTC) [Concomitant]
     Dosage: UNK
  15. NIZATIDINE. [Concomitant]
     Active Substance: NIZATIDINE
     Dosage: UNK

REACTIONS (5)
  - Depression [Unknown]
  - Gastrooesophageal reflux disease [Unknown]
  - Condition aggravated [Unknown]
  - Acute kidney injury [Not Recovered/Not Resolved]
  - Chronic kidney disease [Not Recovered/Not Resolved]

NARRATIVE: CASE EVENT DATE: 20160309
